FAERS Safety Report 24667137 (Version 7)
Quarter: 2025Q1

REPORT INFORMATION
  Report Type: Spontaneous
  Country: CZ (occurrence: CZ)
  Receive Date: 20241126
  Receipt Date: 20250207
  Transmission Date: 20250409
  Serious: Yes (Death, Hospitalization, Other)
  Sender: SANDOZ
  Company Number: CZ-002147023-NVSC2024CZ225228

PATIENT
  Age: 45 Year
  Sex: Female

DRUGS (81)
  1. CIPROFLOXACIN [Suspect]
     Active Substance: CIPROFLOXACIN
     Indication: Pneumonia legionella
     Route: 065
  2. HALOPERIDOL [Suspect]
     Active Substance: HALOPERIDOL
     Route: 048
  3. HALOPERIDOL [Suspect]
     Active Substance: HALOPERIDOL
     Indication: Product used for unknown indication
     Route: 048
  4. HALOPERIDOL [Suspect]
     Active Substance: HALOPERIDOL
     Dosage: 1.5 MG, 1-1-2
     Route: 048
  5. HALOPERIDOL [Suspect]
     Active Substance: HALOPERIDOL
     Dosage: 1.5 MG, 1-1-2
     Route: 048
  6. HALOPERIDOL [Suspect]
     Active Substance: HALOPERIDOL
     Dosage: 1.5 MILLIGRAM, TID ( 1-1-2,)
     Route: 048
  7. MELPERONE [Suspect]
     Active Substance: MELPERONE
     Route: 048
  8. MELPERONE [Suspect]
     Active Substance: MELPERONE
     Dosage: 25 MG, 1-1-2-3
     Route: 048
  9. MELPERONE [Suspect]
     Active Substance: MELPERONE
     Dosage: 25 MG, 1-1-2-3
     Route: 048
  10. MELPERONE [Suspect]
     Active Substance: MELPERONE
     Route: 048
  11. MELPERONE [Suspect]
     Active Substance: MELPERONE
     Indication: Product used for unknown indication
     Route: 048
  12. MELPERONE [Suspect]
     Active Substance: MELPERONE
     Route: 048
  13. AMPICILLIN SODIUM\SULBACTAM SODIUM [Concomitant]
     Active Substance: AMPICILLIN SODIUM\SULBACTAM SODIUM
     Indication: Antibiotic therapy
     Route: 042
  14. AMPICILLIN SODIUM\SULBACTAM SODIUM [Concomitant]
     Active Substance: AMPICILLIN SODIUM\SULBACTAM SODIUM
     Indication: SARS-CoV-2 test positive
  15. CALCIUM\VITAMIN D [Concomitant]
     Active Substance: CALCIUM\VITAMIN D
     Route: 048
  16. CALCIUM\VITAMIN D [Concomitant]
     Active Substance: CALCIUM\VITAMIN D
     Dosage: 0-0-1
     Route: 065
  17. CALCIUM\VITAMIN D [Concomitant]
     Active Substance: CALCIUM\VITAMIN D
     Indication: Product used for unknown indication
     Dosage: UNK, QD (0-0-1)
     Route: 065
  18. CALCIUM\VITAMIN D [Concomitant]
     Active Substance: CALCIUM\VITAMIN D
     Indication: Product used for unknown indication
     Dosage: UNK, QD (0-0-1)
     Route: 065
  19. CALCIUM\VITAMIN D [Concomitant]
     Active Substance: CALCIUM\VITAMIN D
     Indication: Constipation
     Route: 048
  20. CALCIUM\VITAMIN D [Concomitant]
     Active Substance: CALCIUM\VITAMIN D
     Route: 065
  21. CALCIUM\VITAMIN D [Concomitant]
     Active Substance: CALCIUM\VITAMIN D
     Route: 065
  22. CARBAMAZEPINE [Concomitant]
     Active Substance: CARBAMAZEPINE
     Indication: Product used for unknown indication
     Route: 048
  23. DIAZEPAM [Concomitant]
     Active Substance: DIAZEPAM
     Route: 048
  24. DIAZEPAM [Concomitant]
     Active Substance: DIAZEPAM
     Dosage: 10 MG, 1-1-0-1
     Route: 048
  25. DIAZEPAM [Concomitant]
     Active Substance: DIAZEPAM
     Indication: Product used for unknown indication
     Dosage: 10 MG, TID (1?1?0?1)
     Route: 048
  26. FILGRASTIM [Concomitant]
     Active Substance: FILGRASTIM
     Indication: Leukopenia
     Route: 065
  27. LACTULOSE [Concomitant]
     Active Substance: LACTULOSE
     Dosage: 1 TBSP, 1-1-1
     Route: 048
  28. LACTULOSE [Concomitant]
     Active Substance: LACTULOSE
     Dosage: UNK, QD (UNK, TID (TABLE SPOON))
     Route: 065
  29. LACTULOSE [Concomitant]
     Active Substance: LACTULOSE
     Indication: Constipation
     Dosage: UNK, TID (TABLE SPOON)
     Route: 065
  30. LACTULOSE [Concomitant]
     Active Substance: LACTULOSE
     Route: 065
  31. LACTULOSE [Concomitant]
     Active Substance: LACTULOSE
     Route: 048
  32. LACTULOSE [Concomitant]
     Active Substance: LACTULOSE
     Route: 048
  33. LACTULOSE [Concomitant]
     Active Substance: LACTULOSE
     Route: 065
  34. LEVOMEPROMAZINE [Concomitant]
     Active Substance: LEVOMEPROMAZINE
     Indication: Product used for unknown indication
     Dosage: 25 MG, TID (1?1?0?1)
     Route: 048
  35. LEVOMEPROMAZINE [Concomitant]
     Active Substance: LEVOMEPROMAZINE
     Dosage: 1-1-0-1
     Route: 048
  36. LEVOMEPROMAZINE [Concomitant]
     Active Substance: LEVOMEPROMAZINE
     Dosage: 25 MG, TID
     Route: 048
  37. LEVOMEPROMAZINE [Concomitant]
     Active Substance: LEVOMEPROMAZINE
     Route: 048
  38. LEVOMEPROMAZINE [Concomitant]
     Active Substance: LEVOMEPROMAZINE
     Route: 048
  39. LEVOMEPROMAZINE [Concomitant]
     Active Substance: LEVOMEPROMAZINE
     Dosage: 25 MG, 1-1-0-1
     Route: 048
  40. LEVOMEPROMAZINE [Concomitant]
     Active Substance: LEVOMEPROMAZINE
     Indication: Product used for unknown indication
  41. LEVOTHYROXINE [Concomitant]
     Active Substance: LEVOTHYROXINE
     Dosage: 1.5 UG, QD (SA-SU)
     Route: 048
  42. LEVOTHYROXINE [Concomitant]
     Active Substance: LEVOTHYROXINE
     Dosage: 125 UG, QD (MON-FRI)
     Route: 048
  43. LEVOTHYROXINE [Concomitant]
     Active Substance: LEVOTHYROXINE
     Dosage: 125 UG, QD (SATURDAY-SUNDAY) (1.5-0-0)
     Route: 048
  44. LEVOTHYROXINE [Concomitant]
     Active Substance: LEVOTHYROXINE
     Dosage: 125 UG, QD (SATURDAY-SUNDAY) (1.5-0-0)
     Route: 048
  45. LEVOTHYROXINE [Concomitant]
     Active Substance: LEVOTHYROXINE
     Dosage: 125 ?G, 1-0-0, MONDAY-FRIDAY
     Route: 048
  46. LEVOTHYROXINE [Concomitant]
     Active Substance: LEVOTHYROXINE
     Indication: Hypothyroidism
     Dosage: UNK (125 MICROGRAM) (MONDAY? FRIDAY) (1-0-0)
     Route: 048
  47. LEVOTHYROXINE [Concomitant]
     Active Substance: LEVOTHYROXINE
     Dosage: UNK (125 MICROGRAM) 1.5?0?0 (SATURDAY? SUNDAY)
     Route: 048
  48. LEVOTHYROXINE [Concomitant]
     Active Substance: LEVOTHYROXINE
     Dosage: UNK, QD (1.5-0-0 SAT-SUN)
     Route: 048
  49. LEVOTHYROXINE [Concomitant]
     Active Substance: LEVOTHYROXINE
     Dosage: UNK, QD (1.5-0-0 SAT-SUN)
     Route: 048
  50. LEVOTHYROXINE [Concomitant]
     Active Substance: LEVOTHYROXINE
     Dosage: UNK, QD (1.5-0-0 SAT-SUN)
     Route: 048
  51. LEVOTHYROXINE [Concomitant]
     Active Substance: LEVOTHYROXINE
     Route: 048
  52. LEVOTHYROXINE [Concomitant]
     Active Substance: LEVOTHYROXINE
     Route: 048
  53. LEVOTHYROXINE [Concomitant]
     Active Substance: LEVOTHYROXINE
     Dosage: 125 ?G, 1.5-0-0, SATURDAY-SUNDAY
     Route: 048
  54. LEVOTHYROXINE [Concomitant]
     Active Substance: LEVOTHYROXINE
     Dosage: UNK, QD
     Route: 048
  55. LEVOTHYROXINE [Concomitant]
     Active Substance: LEVOTHYROXINE
     Dosage: UNK, QD (1.5-0-0 SAT-SUN)
     Route: 048
  56. LEVOTHYROXINE [Concomitant]
     Active Substance: LEVOTHYROXINE
     Dosage: UNK, QD (1.5-0-0 SAT-SUN)
     Route: 048
  57. VALPROATE [Concomitant]
     Active Substance: VALPROIC ACID
     Indication: Product used for unknown indication
     Dosage: 500 MG, BID (1?0?1)
     Route: 048
  58. VALPROATE [Concomitant]
     Active Substance: VALPROIC ACID
     Dosage: 500 MG, 1-0-1
     Route: 048
  59. VALPROATE [Concomitant]
     Active Substance: VALPROIC ACID
     Route: 048
  60. VALPROATE [Concomitant]
     Active Substance: VALPROIC ACID
     Route: 048
  61. VALPROATE [Concomitant]
     Active Substance: VALPROIC ACID
     Indication: Epilepsy
  62. CARBAMAZEPINE [Interacting]
     Active Substance: CARBAMAZEPINE
     Dosage: 1200 MG, QD (600 MG, BID)
     Route: 048
  63. CARBAMAZEPINE [Interacting]
     Active Substance: CARBAMAZEPINE
     Dosage: 600 MG, BID
     Route: 048
  64. CARBAMAZEPINE [Interacting]
     Active Substance: CARBAMAZEPINE
     Dosage: 300 MG (2?0?2)
     Route: 048
  65. CARBAMAZEPINE [Interacting]
     Active Substance: CARBAMAZEPINE
     Indication: Epilepsy
     Dosage: 300 MG (2?1?0?2)
     Route: 048
  66. CARBAMAZEPINE [Interacting]
     Active Substance: CARBAMAZEPINE
     Dosage: 300 MG (2-0-0-2)
     Route: 048
  67. CARBAMAZEPINE [Interacting]
     Active Substance: CARBAMAZEPINE
     Dosage: 300 MG, BID (2-0-0-2)
     Route: 048
  68. CARBAMAZEPINE [Interacting]
     Active Substance: CARBAMAZEPINE
     Dosage: 300 MG, BID (2-0-2)
     Route: 048
  69. CARBAMAZEPINE [Interacting]
     Active Substance: CARBAMAZEPINE
     Dosage: 300 MG, TID (2-1-0-2)
     Route: 048
  70. CLARITHROMYCIN [Interacting]
     Active Substance: CLARITHROMYCIN
     Indication: C-reactive protein increased
     Route: 065
  71. CLARITHROMYCIN [Interacting]
     Active Substance: CLARITHROMYCIN
     Indication: Lung infiltration
     Route: 065
  72. CLARITHROMYCIN [Interacting]
     Active Substance: CLARITHROMYCIN
     Indication: Procalcitonin increased
     Route: 065
  73. CLARITHROMYCIN [Interacting]
     Active Substance: CLARITHROMYCIN
     Indication: COVID-19
  74. DECADRON (DEXAMETHASONE SODIUM PHOSPHATE) [Interacting]
     Active Substance: DEXAMETHASONE SODIUM PHOSPHATE
     Indication: Constipation
     Route: 065
  75. QUETIAPINE [Interacting]
     Active Substance: QUETIAPINE
     Dosage: 200 MG, QD (1?0?0)
     Route: 048
  76. QUETIAPINE [Interacting]
     Active Substance: QUETIAPINE
     Dosage: 200 MILLIGRAM, QD (1-0-0)
     Route: 048
  77. QUETIAPINE [Interacting]
     Active Substance: QUETIAPINE
     Indication: Product used for unknown indication
     Dosage: 300 MG, QD (0?0?0?1) (TABLET)
     Route: 048
  78. QUETIAPINE [Interacting]
     Active Substance: QUETIAPINE
     Dosage: 300 MG, QD (0-0-0-1)
     Route: 048
  79. QUETIAPINE [Interacting]
     Active Substance: QUETIAPINE
     Dosage: 200 MG(1-0-0), 300 MG(0-0-0-1)
     Route: 048
  80. QUETIAPINE [Interacting]
     Active Substance: QUETIAPINE
     Dosage: 200 MG(1-0-0), 300 MG(0-0-0-1)
     Route: 048
  81. QUETIAPINE [Interacting]
     Active Substance: QUETIAPINE
     Dosage: 800 MG, QD/800 MG, QD
     Route: 065

REACTIONS (15)
  - Torsade de pointes [Fatal]
  - Leukopenia [Unknown]
  - Thrombocytopenia [Unknown]
  - Hyponatraemia [Recovered/Resolved]
  - Drug interaction [Recovered/Resolved]
  - Toxicity to various agents [Recovered/Resolved]
  - Electrocardiogram QT prolonged [Unknown]
  - Arrhythmia [Unknown]
  - Vitamin B12 deficiency [Unknown]
  - Drug level increased [Unknown]
  - Constipation [Unknown]
  - Folate deficiency [Unknown]
  - Drug level below therapeutic [Unknown]
  - Drug ineffective [Unknown]
  - Drug ineffective [Unknown]
